FAERS Safety Report 9835243 (Version 1)
Quarter: 2014Q1

REPORT INFORMATION
  Report Type: Spontaneous
  Country: US (occurrence: US)
  Receive Date: 20140122
  Receipt Date: 20140122
  Transmission Date: 20141002
  Serious: No
  Sender: FDA-Public Use
  Company Number: US-BRISTOL-MYERS SQUIBB COMPANY-19887181

PATIENT
  Age: 90 Year
  Sex: Female

DRUGS (1)
  1. ELIQUIS [Suspect]
     Dosage: TRIAL PACK
     Route: 048

REACTIONS (2)
  - Epistaxis [Unknown]
  - Contusion [Unknown]
